FAERS Safety Report 9368863 (Version 1)
Quarter: 2013Q2

REPORT INFORMATION
  Report Type: Report from Study
  Country: MX (occurrence: MX)
  Receive Date: 20130626
  Receipt Date: 20130626
  Transmission Date: 20140414
  Serious: Yes (Disabling)
  Sender: FDA-Public Use
  Company Number: MX-ROCHE-1241393

PATIENT
  Sex: Female

DRUGS (1)
  1. HERCEPTIN [Suspect]
     Indication: BREAST CANCER
     Dosage: SOLUTION
     Route: 042
     Dates: start: 20120102

REACTIONS (6)
  - Blindness [Unknown]
  - Coordination abnormal [Unknown]
  - Disease progression [Unknown]
  - Confusional state [Unknown]
  - Amnesia [Unknown]
  - Oedema [Unknown]
